FAERS Safety Report 5418907-5 (Version None)
Quarter: 2007Q3

REPORT INFORMATION
  Report Type: 
  Country: None (occurrence: None)
  Receive Date: 20070718
  Receipt Date: 20070102
  Transmission Date: 20080115
  Serious: Yes (Hospitalization, Other)
  Sender: FDA-Public Use
  Company Number: 2006092847

PATIENT
  Age: 60 Year
  Sex: Female
  Weight: 70.3 kg

DRUGS (2)
  1. CELEBREX [Suspect]
     Indication: ARTHRITIS
     Dosage: ORAL
     Route: 048
     Dates: start: 20010111, end: 20010701
  2. VIOXX [Suspect]
     Dosage: ORAL
     Route: 048
     Dates: start: 20010901

REACTIONS (1)
  - MYOCARDIAL INFARCTION [None]
